FAERS Safety Report 18821274 (Version 1)
Quarter: 2021Q1

REPORT INFORMATION
  Report Type: Spontaneous
  Country: US (occurrence: US)
  Receive Date: 20210201
  Receipt Date: 20210201
  Transmission Date: 20210419
  Serious: No
  Sender: FDA-Public Use
  Company Number: NVSC2021US018996

PATIENT
  Age: 50 Year
  Sex: Female
  Weight: 49.89 kg

DRUGS (2)
  1. XIIDRA [Suspect]
     Active Substance: LIFITEGRAST
     Indication: DRY EYE
     Dosage: 50 MG, BID
     Route: 047
     Dates: start: 20201001, end: 20201101
  2. XIIDRA [Suspect]
     Active Substance: LIFITEGRAST
     Dosage: 50 MG, BID (ML)
     Route: 047
     Dates: start: 20201001, end: 20201101

REACTIONS (1)
  - Dry eye [Unknown]

NARRATIVE: CASE EVENT DATE: 20201001
